FAERS Safety Report 8620940 (Version 2)
Quarter: 2013Q1

REPORT INFORMATION
  Report Type: Spontaneous
  Country: US (occurrence: None)
  Receive Date: 20120531
  Receipt Date: 20130222
  Transmission Date: 20140127
  Serious: Yes (Hospitalization, Disabling, Other)
  Sender: FDA-Public Use
  Company Number: ACO_30168_2012

PATIENT
  Age: 46 Year
  Sex: Female

DRUGS (4)
  1. AMPYRA [Suspect]
     Indication: PRODUCT USED FOR UNKNOWN INDICATION
     Dosage: 10 MG, Q 12 HRS, ORAL
     Route: 048
     Dates: start: 20100423, end: 2012
  2. TRAZODONE HYDROCHLORIDE [Suspect]
     Indication: PRODUCT USED FOR UNKNOWN INDICATION
     Dates: end: 2012
  3. VICODIN [Concomitant]
  4. PAXIL [Concomitant]

REACTIONS (10)
  - Loss of consciousness [None]
  - Joint range of motion decreased [None]
  - Hair texture abnormal [None]
  - Accidental overdose [None]
  - Drug administration error [None]
  - Convulsion [None]
  - Therapeutic response unexpected [None]
  - Convulsion [None]
  - Wrong technique in drug usage process [None]
  - Inappropriate schedule of drug administration [None]
